FAERS Safety Report 4917828-1 (Version None)
Quarter: 2006Q1

REPORT INFORMATION
  Report Type: 
  Country: None (occurrence: None)
  Receive Date: 20060113
  Receipt Date: 20051018
  Transmission Date: 20060701
  Serious: No
  Sender: FDA-Public Use
  Company Number: 2005SP003573

PATIENT
  Age: 35 Year
  Sex: Male
  Weight: 80.2867 kg

DRUGS (1)
  1. LUNESTA [Suspect]
     Indication: MIDDLE INSOMNIA
     Dosage: 3 MG; HS; ORAL
     Route: 048
     Dates: start: 20051001, end: 20051001

REACTIONS (3)
  - DYSGEUSIA [None]
  - HEADACHE [None]
  - PHARYNGOLARYNGEAL PAIN [None]
